FAERS Safety Report 17965105 (Version 1)
Quarter: 2020Q2

REPORT INFORMATION
  Report Type: Spontaneous
  Country: PK (occurrence: PK)
  Receive Date: 20200630
  Receipt Date: 20200630
  Transmission Date: 20200714
  Serious: Yes (Life-Threatening, Hospitalization)
  Sender: FDA-Public Use
  Company Number: PK-CAPLIN STERILES LIMITED-2020PK-VER-000004

PATIENT

DRUGS (4)
  1. VERAPAMIL HYDROCHLORIDE. [Suspect]
     Active Substance: VERAPAMIL HYDROCHLORIDE
     Dosage: 60 TABLETS OF 125 MG; FORMULATION: EXTENDED RELEASE TABLETS
     Route: 048
  2. CLONAZEPAM. [Suspect]
     Active Substance: CLONAZEPAM
     Indication: RESTLESS LEGS SYNDROME
     Dosage: UNK
     Route: 048
  3. CLONAZEPAM. [Suspect]
     Active Substance: CLONAZEPAM
     Dosage: 90 TABLETS
     Route: 048
  4. VERAPAMIL HYDROCHLORIDE. [Suspect]
     Active Substance: VERAPAMIL HYDROCHLORIDE
     Indication: MIGRAINE PROPHYLAXIS
     Dosage: 125 MG; FORMULATION: EXTENDED RELEASE TABLETS
     Route: 048

REACTIONS (8)
  - Intentional overdose [Unknown]
  - Mental status changes [Unknown]
  - Acute respiratory distress syndrome [Unknown]
  - Dysarthria [Unknown]
  - Suicide attempt [Unknown]
  - Hypoxia [Unknown]
  - Bradycardia [Recovering/Resolving]
  - Hypotension [Recovering/Resolving]
